FAERS Safety Report 17109865 (Version 1)
Quarter: 2019Q4

REPORT INFORMATION
  Report Type: Spontaneous
  Country: SE (occurrence: SE)
  Receive Date: 20191204
  Receipt Date: 20191204
  Transmission Date: 20200122
  Serious: Yes (Hospitalization)
  Sender: FDA-Public Use
  Company Number: SE-TEVA-2019-SE-1145948

PATIENT
  Sex: Female

DRUGS (5)
  1. ZOPICLONE [Suspect]
     Active Substance: ZOPICLONE
     Dosage: 75 MG
     Route: 048
     Dates: start: 20180711, end: 20180711
  2. LERGIGAN (PROMETHAZINE HYDROCHLORIDE) [Suspect]
     Active Substance: PROMETHAZINE HYDROCHLORIDE
     Dosage: 375 MG
     Route: 048
     Dates: start: 20180711, end: 20180711
  3. ATARAX [Suspect]
     Active Substance: HYDROXYZINE HYDROCHLORIDE
     Dosage: 375 MG
     Route: 048
     Dates: start: 20180711, end: 20180711
  4. NOZINAN [Suspect]
     Active Substance: LEVOMEPROMAZINE
     Dosage: 375 MG
     Route: 048
     Dates: start: 20180711, end: 20180711
  5. STESOLID [Suspect]
     Active Substance: DIAZEPAM
     Dosage: 75 MG
     Route: 048
     Dates: start: 20180711, end: 20180711

REACTIONS (4)
  - Nausea [Unknown]
  - Tachycardia [Unknown]
  - Intentional overdose [Unknown]
  - Intentional self-injury [Unknown]

NARRATIVE: CASE EVENT DATE: 20180711
